FAERS Safety Report 7492464-4 (Version None)
Quarter: 2011Q2

REPORT INFORMATION
  Report Type: 
  Country: None (occurrence: None)
  Receive Date: 20110519
  Receipt Date: 20110505
  Transmission Date: 20111010
  Serious: Yes (Hospitalization, Disabling, Other)
  Sender: FDA-Public Use
  Company Number: US-AMGEN-KDL427135

PATIENT
  Age: 79 Year
  Sex: Female

DRUGS (2)
  1. ENBREL [Suspect]
     Indication: RHEUMATOID ARTHRITIS
     Dosage: 50 MG, QWK
     Route: 058
     Dates: start: 20050401
  2. METHOTREXATE [Concomitant]
     Dosage: UNK UNK, UNK

REACTIONS (10)
  - RHEUMATOID ARTHRITIS [None]
  - DIABETIC NEUROPATHY [None]
  - PAIN IN EXTREMITY [None]
  - PHYSICAL DISABILITY [None]
  - CELLULITIS [None]
  - LOCALISED INFECTION [None]
  - OEDEMA PERIPHERAL [None]
  - GLUCOSE TOLERANCE IMPAIRED [None]
  - MUSCULOSKELETAL STIFFNESS [None]
  - BLOOD POTASSIUM DECREASED [None]
